FAERS Safety Report 16892738 (Version 4)
Quarter: 2019Q4

REPORT INFORMATION
  Report Type: Spontaneous
  Country: GR (occurrence: GR)
  Receive Date: 20191007
  Receipt Date: 20191107
  Transmission Date: 20200122
  Serious: Yes (Life-Threatening, Hospitalization, Other)
  Sender: FDA-Public Use
  Company Number: GR-VALIDUS PHARMACEUTICALS LLC-GR-2019VAL000569

PATIENT

DRUGS (5)
  1. METFORMIN HYDROCHLORIDE. [Suspect]
     Active Substance: METFORMIN HYDROCHLORIDE
     Indication: DIABETES MELLITUS
     Dosage: 1000 MG, QD
     Route: 065
  2. OLMESARTAN [Suspect]
     Active Substance: OLMESARTAN
     Indication: HYPERTENSION
     Dosage: 10 MG, QD, TABLET
     Route: 065
  3. ATORVASTATIN [Suspect]
     Active Substance: ATORVASTATIN
     Indication: DYSLIPIDAEMIA
     Dosage: 20 MG, UNK
     Route: 065
  4. ATENOLOL. [Suspect]
     Active Substance: ATENOLOL
     Indication: HYPERTENSION
     Dosage: 500 MG, QD
     Route: 048
  5. FUROSEMIDE. [Suspect]
     Active Substance: FUROSEMIDE
     Indication: HYPERTENSION
     Dosage: 40 MG, QD
     Route: 065

REACTIONS (13)
  - Discomfort [Unknown]
  - Hyperkalaemia [Recovered/Resolved]
  - Shock [Recovered/Resolved]
  - Malaise [Unknown]
  - Renal failure [Recovered/Resolved]
  - Hypotension [Unknown]
  - Bradycardia [Recovered/Resolved]
  - Tachypnoea [Unknown]
  - Fatigue [Unknown]
  - Atrioventricular block [Recovered/Resolved]
  - Peripheral coldness [Unknown]
  - Dizziness [Unknown]
  - Diarrhoea [Unknown]
